FAERS Safety Report 7854651-2 (Version None)
Quarter: 2011Q4

REPORT INFORMATION
  Report Type: 
  Country: None (occurrence: None)
  Receive Date: 20111026
  Receipt Date: 20111026
  Transmission Date: 20120403
  Serious: Yes (Death)
  Sender: FDA-Public Use
  Company Number: ZA-BAYER-2011-103771

PATIENT

DRUGS (7)
  1. ACETYLSALICYLIC ACID SRT [Suspect]
     Indication: MENINGITIS TUBERCULOUS
     Dosage: PRE-TREATMENT
     Route: 065
  2. ETHIONAMIDE [Concomitant]
     Indication: MENINGITIS TUBERCULOUS
     Dosage: 20 MG/KG, QD
     Route: 048
  3. ISONIAZID [Concomitant]
     Indication: MENINGITIS TUBERCULOUS
     Dosage: 20 MG/KG, QD
     Route: 048
  4. PYRAZINAMIDE [Concomitant]
     Indication: MENINGITIS TUBERCULOUS
     Dosage: 40 MG/KG, QD, MAXIMUM DOSE OF 1200 MG/DAY
     Route: 048
  5. PREDNISONE [Concomitant]
     Indication: MENINGITIS TUBERCULOUS
     Dosage: 2 MG/KG, QD, MAXIMUM DAILY DOSE 60 MG
     Route: 048
  6. RIFAMPIN [Concomitant]
     Indication: MENINGITIS TUBERCULOUS
     Dosage: 20 MG/KG, QD
     Route: 048
  7. ACETYLSALICYLIC ACID SRT [Suspect]
     Dosage: DAILY DOSE 75 MG
     Route: 048

REACTIONS (1)
  - CEREBRAL HAEMORRHAGE [None]
